FAERS Safety Report 11597637 (Version 1)
Quarter: 2015Q4

REPORT INFORMATION
  Report Type: Spontaneous
  Country: US (occurrence: US)
  Receive Date: 20151006
  Receipt Date: 20151006
  Transmission Date: 20160304
  Serious: No
  Sender: FDA-Public Use
  Company Number: US-AMGEN-USASP2015005871

PATIENT
  Age: 71 Year
  Sex: Female

DRUGS (8)
  1. IRINOTECAN [Concomitant]
     Active Substance: IRINOTECAN
     Indication: NEOPLASM PROGRESSION
  2. IRINOTECAN [Concomitant]
     Active Substance: IRINOTECAN
     Indication: COLORECTAL CANCER METASTATIC
     Dosage: UNK
  3. VECTIBIX [Suspect]
     Active Substance: PANITUMUMAB
     Indication: COLORECTAL CANCER METASTATIC
     Dosage: UNK
     Route: 065
  4. 5-FU                               /00098801/ [Concomitant]
     Active Substance: FLUOROURACIL
     Indication: NEOPLASM PROGRESSION
  5. VECTIBIX [Suspect]
     Active Substance: PANITUMUMAB
     Indication: NEOPLASM PROGRESSION
  6. FOLINIC ACID [Concomitant]
     Active Substance: LEUCOVORIN
     Indication: COLORECTAL CANCER METASTATIC
     Dosage: UNK
  7. 5-FU                               /00098801/ [Concomitant]
     Active Substance: FLUOROURACIL
     Indication: COLORECTAL CANCER METASTATIC
     Dosage: UNK
  8. FOLINIC ACID [Concomitant]
     Active Substance: LEUCOVORIN
     Indication: NEOPLASM PROGRESSION

REACTIONS (4)
  - Eye swelling [Recovering/Resolving]
  - Blister [Recovering/Resolving]
  - Rash macular [Recovering/Resolving]
  - Paronychia [Recovering/Resolving]
